FAERS Safety Report 21363573 (Version 1)
Quarter: 2022Q3

REPORT INFORMATION
  Report Type: Spontaneous
  Country: GB (occurrence: GB)
  Receive Date: 20220922
  Receipt Date: 20220922
  Transmission Date: 20221026
  Serious: Yes (Death, Life-Threatening, Other)
  Sender: FDA-Public Use
  Company Number: GB-MHRA-MED-202209191533398880-YJFBT

PATIENT
  Age: 69 Year
  Sex: Male

DRUGS (3)
  1. TENOFOVIR DISOPROXIL [Suspect]
     Active Substance: TENOFOVIR DISOPROXIL
     Indication: Hepatitis
     Dosage: 245 MILLIGRAM, QD
     Route: 065
     Dates: start: 20220713, end: 20220806
  2. BEVACIZUMAB [Suspect]
     Active Substance: BEVACIZUMAB
     Indication: Hepatocellular carcinoma
     Dosage: 825 MILLIGRAM, Q3W (825 MG (15MG/KG) EVER 21 DAYS)
     Route: 065
     Dates: start: 20220721
  3. ATEZOLIZUMAB [Suspect]
     Active Substance: ATEZOLIZUMAB
     Indication: Hepatocellular carcinoma
     Dosage: 1200 MILLIGRAM, Q3W
     Route: 065
     Dates: start: 20220721

REACTIONS (1)
  - Stevens-Johnson syndrome [Fatal]

NARRATIVE: CASE EVENT DATE: 20220801
